FAERS Safety Report 16667601 (Version 1)
Quarter: 2019Q3

REPORT INFORMATION
  Report Type: Spontaneous
  Country: US (occurrence: US)
  Receive Date: 20190805
  Receipt Date: 20190805
  Transmission Date: 20191004
  Serious: No
  Sender: FDA-Public Use
  Company Number: US-ELI_LILLY_AND_COMPANY-US201907007903

PATIENT
  Sex: Female
  Weight: 76.2 kg

DRUGS (10)
  1. HUMALOG [Suspect]
     Active Substance: INSULIN LISPRO
     Indication: DIABETES MELLITUS
     Dosage: 4 U, TID (BEFORE BREAKFAST, LUNCH AND DINNER)
     Route: 065
     Dates: start: 20190613
  2. IMVEXXY [Concomitant]
     Active Substance: ESTRADIOL
     Indication: VULVOVAGINAL DRYNESS
     Dosage: 2 DOSAGE FORM, WEEKLY (1/W) (MORNING ON TUESDAY AND FRIDAY)
     Route: 067
     Dates: start: 20190312
  3. LANTUS [Suspect]
     Active Substance: INSULIN GLARGINE
     Dosage: 15 U, EACH EVENING (AT NIGHT)
     Route: 065
  4. GLUCOSE [Concomitant]
     Active Substance: DEXTROSE
     Indication: PRODUCT USED FOR UNKNOWN INDICATION
     Dosage: UNK, PRN
  5. LANTUS [Suspect]
     Active Substance: INSULIN GLARGINE
     Dosage: 18 U, EACH EVENING (AT NIGHT)
     Route: 065
     Dates: end: 20190616
  6. LANTUS [Suspect]
     Active Substance: INSULIN GLARGINE
     Dosage: 12 U, EACH EVENING (AT NIGHT)
     Route: 065
     Dates: start: 20190617
  7. TRAMADOLE [Concomitant]
     Active Substance: TRAMADOL HYDROCHLORIDE
     Indication: PRODUCT USED FOR UNKNOWN INDICATION
     Dosage: 1 DOSAGE FORM, PRN
  8. MELATONINE [Concomitant]
     Active Substance: MELATONIN
     Indication: SUPPLEMENTATION THERAPY
     Dosage: 1 DOSAGE FORM, EACH EVENING (BEFORE BED TIME)
  9. LANTUS [Suspect]
     Active Substance: INSULIN GLARGINE
     Indication: DIABETES MELLITUS
     Dosage: 10 U, EACH EVENING (AT NIGHT)
     Route: 065
     Dates: start: 20190415
  10. LANTUS [Suspect]
     Active Substance: INSULIN GLARGINE
     Dosage: 4 U, TID (BEFORE BREAKFAST, LUNCH AND DINNER)
     Route: 065

REACTIONS (3)
  - Tremor [Recovered/Resolved]
  - Blood glucose decreased [Unknown]
  - Blood glucose increased [Unknown]

NARRATIVE: CASE EVENT DATE: 20190619
